FAERS Safety Report 4891147-4 (Version None)
Quarter: 2006Q1

REPORT INFORMATION
  Report Type: 
  Country: None (occurrence: None)
  Receive Date: 20060125
  Receipt Date: 20050930
  Transmission Date: 20060701
  Serious: Yes (Death)
  Sender: FDA-Public Use
  Company Number: US-MERCK-0510USA01091

PATIENT
  Age: 50 Year
  Sex: Male
  Weight: 95 kg

DRUGS (2)
  1. VIOXX [Suspect]
     Indication: JOINT SPRAIN
     Route: 048
     Dates: start: 20010321, end: 20030324
  2. VIOXX [Suspect]
     Indication: SHOULDER PAIN
     Route: 048
     Dates: start: 20010321, end: 20030324

REACTIONS (11)
  - ACANTHOSIS [None]
  - ARTERIOSCLEROSIS [None]
  - CARDIOVASCULAR DISORDER [None]
  - HYPERPLASTIC CHOLECYSTOPATHY [None]
  - HYPERTENSION [None]
  - INJURY [None]
  - NEPHROLITHIASIS [None]
  - OTITIS EXTERNA [None]
  - OTITIS MEDIA ACUTE [None]
  - PULMONARY CONGESTION [None]
  - PULMONARY OEDEMA [None]
